FAERS Safety Report 4765797-X (Version None)
Quarter: 2005Q3

REPORT INFORMATION
  Report Type: 
  Country: None (occurrence: None)
  Receive Date: 20050906
  Receipt Date: 20050826
  Transmission Date: 20060218
  Serious: Yes (Hospitalization)
  Sender: FDA-Public Use
  Company Number: 2005FR-00270

PATIENT
  Age: 63 Year
  Sex: Female

DRUGS (8)
  1. ASPIRIN [Suspect]
     Indication: MYOCARDIAL ISCHAEMIA
     Dosage: 75 MG, ORAL
     Route: 048
  2. ARTHROTEC [Concomitant]
  3. CELEBREX [Concomitant]
  4. ATORVASTATIN [Concomitant]
  5. ISMN [Concomitant]
  6. LANTUS [Concomitant]
  7. SERETIDE [Concomitant]
  8. ESOMEPRAZOLE [Concomitant]

REACTIONS (2)
  - ANAEMIA [None]
  - GASTROINTESTINAL HAEMORRHAGE [None]
